FAERS Safety Report 15560009 (Version 1)
Quarter: 2018Q4

REPORT INFORMATION
  Report Type: Report from Study
  Country: CA (occurrence: CA)
  Receive Date: 20181029
  Receipt Date: 20181029
  Transmission Date: 20190205
  Serious: Yes (Death, Other)
  Sender: FDA-Public Use
  Company Number: PHHY2016CA139417

PATIENT
  Age: 87 Year
  Sex: Male
  Weight: 65.76 kg

DRUGS (1)
  1. SANDOSTATIN LAR DEPOT [Suspect]
     Active Substance: OCTREOTIDE ACETATE
     Indication: CARCINOID TUMOUR
     Dosage: 30 MG, QMO (ONCE A MONTH)
     Route: 030
     Dates: start: 20160408, end: 20181011

REACTIONS (17)
  - Carcinoid tumour [Unknown]
  - Secretion discharge [Unknown]
  - Musculoskeletal pain [Recovered/Resolved]
  - Heart rate irregular [Unknown]
  - Blood pressure decreased [Unknown]
  - Nasal congestion [Unknown]
  - Pruritus [Unknown]
  - Blood pressure systolic increased [Unknown]
  - Nausea [Recovering/Resolving]
  - Death [Fatal]
  - Weight decreased [Unknown]
  - Pain in extremity [Recovered/Resolved]
  - Fatigue [Unknown]
  - Vomiting [Recovering/Resolving]
  - Malignant neoplasm progression [Unknown]
  - Productive cough [Unknown]
  - Influenza like illness [Unknown]

NARRATIVE: CASE EVENT DATE: 20160920
